FAERS Safety Report 6383771-7 (Version None)
Quarter: 2009Q3

REPORT INFORMATION
  Report Type: 
  Country: None (occurrence: None)
  Receive Date: 20090929
  Receipt Date: 20090929
  Transmission Date: 20100115
  Serious: Yes (Other)
  Sender: FDA-Public Use
  Company Number: None

PATIENT
  Sex: Male
  Weight: 84.1 kg

DRUGS (2)
  1. SINGULAIR [Suspect]
  2. ZYRTEC [Concomitant]

REACTIONS (1)
  - CONVULSION [None]
